FAERS Safety Report 20189433 (Version 1)
Quarter: 2021Q4

REPORT INFORMATION
  Report Type: Spontaneous
  Country: US (occurrence: US)
  Receive Date: 20211215
  Receipt Date: 20211215
  Transmission Date: 20220303
  Serious: No
  Sender: FDA-Public Use
  Company Number: US-REGENERON PHARMACEUTICALS, INC.-2021-27346

PATIENT

DRUGS (4)
  1. EYLEA [Suspect]
     Active Substance: AFLIBERCEPT
     Indication: Retinal vein occlusion
     Dosage: 2 MG, EVERY 5 TO 6 WEEKS
     Route: 031
     Dates: start: 202006
  2. EYLEA [Suspect]
     Active Substance: AFLIBERCEPT
     Indication: Retinopathy hypertensive
     Dosage: 2 MG, EVERY 5 TO 6 WEEKS
     Route: 031
     Dates: start: 20201118, end: 20201118
  3. EYLEA [Suspect]
     Active Substance: AFLIBERCEPT
     Indication: Type 2 diabetes mellitus
  4. EYLEA [Suspect]
     Active Substance: AFLIBERCEPT
     Indication: Macular oedema

REACTIONS (2)
  - Product dose omission issue [Unknown]
  - Off label use [Unknown]

NARRATIVE: CASE EVENT DATE: 20201214
